FAERS Safety Report 15491845 (Version 1)
Quarter: 2018Q4

REPORT INFORMATION
  Report Type: Spontaneous
  Country: JP (occurrence: JP)
  Receive Date: 20181012
  Receipt Date: 20181012
  Transmission Date: 20190205
  Serious: Yes (Other)
  Sender: FDA-Public Use
  Company Number: JP-ACCORD-073349

PATIENT
  Age: 49 Year
  Sex: Female

DRUGS (3)
  1. IFOSFAMIDE. [Suspect]
     Active Substance: IFOSFAMIDE
     Indication: UTERINE LEIOMYOSARCOMA
     Dosage: FIRST COURSE,CYCLE
  2. CISPLATIN. [Suspect]
     Active Substance: CISPLATIN
     Indication: UTERINE LEIOMYOSARCOMA
     Dosage: FIRST COURSE,CYCLE
  3. DOXORUBICIN [Suspect]
     Active Substance: DOXORUBICIN
     Indication: UTERINE LEIOMYOSARCOMA
     Dosage: FIRST COURSE,CYCLE

REACTIONS (1)
  - Pulmonary oedema [Unknown]
